FAERS Safety Report 9533960 (Version 1)
Quarter: 2013Q3

REPORT INFORMATION
  Report Type: Spontaneous
  Country: CA (occurrence: CA)
  Receive Date: 20130918
  Receipt Date: 20130918
  Transmission Date: 20140515
  Serious: Yes (Hospitalization)
  Sender: FDA-Public Use
  Company Number: CA-009507513-1309CAN008124

PATIENT
  Age: 46 Year
  Sex: Female
  Weight: 79.37 kg

DRUGS (3)
  1. VICTRELIS TRIPLE [Suspect]
     Indication: PRODUCT USED FOR UNKNOWN INDICATION
     Dosage: 800 MG, UNKNOWN
     Route: 048
  2. VICTRELIS TRIPLE [Suspect]
     Dosage: 1200 MG, UNKNOWN
     Route: 048
  3. VICTRELIS TRIPLE [Suspect]
     Dosage: 150 MG, UNKNOWN
     Route: 058

REACTIONS (3)
  - Chest pain [Unknown]
  - Dyspnoea [Unknown]
  - Haemoglobin decreased [Unknown]
